FAERS Safety Report 7744904-0 (Version None)
Quarter: 2011Q3

REPORT INFORMATION
  Report Type: 
  Country: None (occurrence: None)
  Receive Date: 20110913
  Receipt Date: 20101101
  Transmission Date: 20111222
  Serious: Yes (Hospitalization, Other)
  Sender: FDA-Public Use
  Company Number: US-BAYER-201026324NA

PATIENT
  Age: 75 Year
  Sex: Female
  Weight: 91.364 kg

DRUGS (11)
  1. COUMADIN [Concomitant]
  2. DIOVAN [Concomitant]
  3. METFFORMIN HYDROCHLORIDE [Concomitant]
  4. METOPROLOL SUCCINATE [Concomitant]
  5. NASONEX [Concomitant]
  6. EOVIST [Suspect]
     Indication: NUCLEAR MAGNETIC RESONANCE IMAGING ABDOMINAL
     Dosage: STRENGTH: ^0.25 MOL/L^;  AT THE RATE OF 2 ML/SEC INTO RIGHT ANTECUBITAL WITH POWER INJECTOR
     Route: 042
     Dates: start: 20100621, end: 20100621
  7. CALCIUM CARBONATE [Concomitant]
  8. EOVIST [Suspect]
     Indication: HEPATIC NEOPLASM
  9. POTASSIUM [Concomitant]
  10. LASIX [Concomitant]
  11. PRILOSEC [Concomitant]

REACTIONS (6)
  - DERMATITIS BULLOUS [None]
  - FEELING JITTERY [None]
  - PHARYNGEAL OEDEMA [None]
  - DYSPNOEA [None]
  - DIZZINESS [None]
  - PALPITATIONS [None]
